FAERS Safety Report 10136771 (Version 1)
Quarter: 2014Q2

REPORT INFORMATION
  Report Type: Spontaneous
  Country: US (occurrence: US)
  Receive Date: 20140429
  Receipt Date: 20140429
  Transmission Date: 20141212
  Serious: No
  Sender: FDA-Public Use
  Company Number: US-MYLANLABS-2013S1012394

PATIENT
  Age: 57 Year
  Sex: Female
  Weight: 104.33 kg

DRUGS (13)
  1. DUONEB INHALATION SOLUTION [Suspect]
     Indication: EMPHYSEMA
     Route: 055
  2. STOOL SOFTENER [Concomitant]
     Route: 048
  3. PULMICORT [Concomitant]
     Indication: EMPHYSEMA
     Route: 055
  4. PERFOROMIST [Concomitant]
     Indication: EMPHYSEMA
     Route: 055
  5. HYDROCHLOROTHIAZIDE [Concomitant]
     Route: 048
  6. ENALAPRIL [Concomitant]
     Route: 048
  7. CARDIZEM [Concomitant]
     Route: 048
  8. SOMA [Concomitant]
     Route: 048
  9. TYLENOL W/CODEINE NO. 3 [Concomitant]
     Dosage: FOUR TABLETS DAILY.
     Route: 048
  10. CLARITIN /00917501/ [Concomitant]
     Route: 048
  11. LESCOL [Concomitant]
     Route: 048
  12. PRILOSEC [Concomitant]
     Indication: ABDOMINAL OPERATION
     Route: 048
  13. NASONEX [Concomitant]
     Route: 045

REACTIONS (3)
  - Drug ineffective [Recovered/Resolved]
  - Palpitations [Recovered/Resolved]
  - Tremor [Recovered/Resolved]
